FAERS Safety Report 16609110 (Version 1)
Quarter: 2019Q3

REPORT INFORMATION
  Report Type: Other
  Country: AU (occurrence: AU)
  Receive Date: 20190722
  Receipt Date: 20190722
  Transmission Date: 20191004
  Serious: Yes (Other)
  Sender: FDA-Public Use
  Company Number: AU-APOTEX-2019AP018461

PATIENT

DRUGS (1)
  1. APO-QUETIAPINE [Suspect]
     Active Substance: QUETIAPINE
     Indication: PRODUCT USED FOR UNKNOWN INDICATION
     Dosage: UNK
     Route: 065

REACTIONS (10)
  - Peripheral coldness [Unknown]
  - Migraine [Unknown]
  - Paraesthesia [Not Recovered/Not Resolved]
  - Pyrexia [Unknown]
  - Rectal haemorrhage [Unknown]
  - Coordination abnormal [Unknown]
  - Suicidal ideation [Unknown]
  - Dysarthria [Unknown]
  - Hypoaesthesia [Unknown]
  - Vision blurred [Unknown]
